FAERS Safety Report 4337844-0 (Version None)
Quarter: 2004Q2

REPORT INFORMATION
  Report Type: 
  Country: None (occurrence: None)
  Receive Date: 20040408
  Receipt Date: 20040402
  Transmission Date: 20050107
  Serious: Yes (Death)
  Sender: FDA-Public Use
  Company Number: GBR-2004-0000969

PATIENT
  Sex: Male

DRUGS (2)
  1. OXYCONTIN [Suspect]
     Dosage: 400 MG, SINGLE, ORAL
     Route: 048
  2. ALCOHOL (ETHANOL) [Suspect]
     Dosage: 1 BOTTLE, SINGLE

REACTIONS (2)
  - ACCIDENTAL OVERDOSE [None]
  - ALCOHOL POISONING [None]
